FAERS Safety Report 8017183-7 (Version None)
Quarter: 2012Q1

REPORT INFORMATION
  Report Type: 
  Country: None (occurrence: None)
  Receive Date: 20120102
  Receipt Date: 20111220
  Transmission Date: 20120608
  Serious: Yes (Other)
  Sender: FDA-Public Use
  Company Number: PHHY2011US110703

PATIENT
  Age: 92 Year
  Sex: Female

DRUGS (5)
  1. AMIODARONE HCL [Concomitant]
     Indication: ATRIAL FIBRILLATION
     Dosage: 200 MG, DAILY
  2. NIFEDIPINE [Concomitant]
  3. CARVEDILOL [Concomitant]
  4. LEVOFLOXACIN [Suspect]
     Indication: PYELONEPHRITIS
     Dosage: 1 DF, ONCE/SINGLE
     Route: 042
  5. INSULIN [Concomitant]

REACTIONS (3)
  - TORSADE DE POINTES [None]
  - ELECTROCARDIOGRAM QT PROLONGED [None]
  - CARDIAC ARREST [None]
